FAERS Safety Report 8405282-7 (Version None)
Quarter: 2012Q2

REPORT INFORMATION
  Report Type: 
  Country: None (occurrence: None)
  Receive Date: 20120603
  Receipt Date: 20120530
  Transmission Date: 20120825
  Serious: Yes (Hospitalization)
  Sender: FDA-Public Use
  Company Number: DE-AMGEN-DEUSP2012033872

PATIENT
  Sex: Male

DRUGS (12)
  1. RITUXIMAB [Suspect]
     Indication: B-CELL LYMPHOMA
     Dosage: UNK
     Route: 042
     Dates: start: 20120416
  2. NEULASTA [Suspect]
     Indication: B-CELL LYMPHOMA
     Dosage: UNK
     Route: 058
     Dates: start: 20120420
  3. SIMVASTATIN [Concomitant]
     Dosage: 1 MG, QD
     Route: 048
  4. DOXORUBICIN HCL [Suspect]
     Indication: B-CELL LYMPHOMA
     Dosage: UNK
     Route: 042
     Dates: start: 20120417
  5. VINCRISTINE [Suspect]
     Indication: B-CELL LYMPHOMA
     Dosage: UNK
     Route: 042
     Dates: start: 20120417
  6. PREDNISONE [Suspect]
     Indication: B-CELL LYMPHOMA
     Dosage: UNK
     Dates: start: 20120417
  7. AMIODARONE HCL [Concomitant]
     Indication: TACHYCARDIA
     Dosage: 200 MG, TID
     Route: 048
     Dates: start: 20120505
  8. DIGITOXIN TAB [Concomitant]
  9. BISOPROLOL FUMARATE [Concomitant]
     Dosage: 5 MG, QD
  10. SIMVASTATIN [Concomitant]
     Dosage: 20 MG, QD
     Route: 048
  11. CYCLOPHOSPHAMIDE [Suspect]
     Indication: B-CELL LYMPHOMA
     Dosage: UNK
     Route: 042
     Dates: start: 20120417
  12. LEVOTHYROXINE SODIUM [Concomitant]

REACTIONS (2)
  - AORTIC ANEURYSM [None]
  - FEBRILE NEUTROPENIA [None]
